FAERS Safety Report 15010543 (Version 1)
Quarter: 2018Q2

REPORT INFORMATION
  Report Type: Spontaneous
  Country: AU (occurrence: AU)
  Receive Date: 20180614
  Receipt Date: 20180614
  Transmission Date: 20180711
  Serious: Yes (Other)
  Sender: FDA-Public Use
  Company Number: AU-TEVA-2018-AU-907170

PATIENT
  Age: 49 Year
  Sex: Female

DRUGS (7)
  1. QUETIAPINE. [Suspect]
     Active Substance: QUETIAPINE
     Route: 065
  2. FEXOFENADINE [Concomitant]
     Active Substance: FEXOFENADINE\FEXOFENADINE HYDROCHLORIDE
  3. CITALOPRAM [Suspect]
     Active Substance: CITALOPRAM HYDROBROMIDE
     Route: 065
  4. PAROXETINE. [Suspect]
     Active Substance: PAROXETINE
     Route: 065
  5. VALDOXAN [Suspect]
     Active Substance: AGOMELATINE
     Route: 065
  6. XOLAIR [Suspect]
     Active Substance: OMALIZUMAB
     Route: 065
  7. CETIRIZINE [Concomitant]
     Active Substance: CETIRIZINE HYDROCHLORIDE

REACTIONS (10)
  - Urticaria [Unknown]
  - Cervical cord compression [Unknown]
  - Intervertebral disc degeneration [Unknown]
  - Hypoaesthesia [Unknown]
  - Depression [Unknown]
  - Hangover [Unknown]
  - Prescription drug used without a prescription [Unknown]
  - Weight increased [Unknown]
  - Drug intolerance [Unknown]
  - Paraesthesia [Unknown]
